FAERS Safety Report 7538790-1 (Version None)
Quarter: 2011Q2

REPORT INFORMATION
  Report Type: 
  Country: None (occurrence: None)
  Receive Date: 20110610
  Receipt Date: 20110510
  Transmission Date: 20111010
  Serious: Yes (Other)
  Sender: FDA-Public Use
  Company Number: US-BAYER-2011-011234

PATIENT
  Age: 22 Year
  Sex: Female
  Weight: 90.703 kg

DRUGS (1)
  1. YAZ [Suspect]
     Indication: PRODUCT USED FOR UNKNOWN INDICATION
     Dosage: UNK
     Dates: start: 20050101, end: 20090101

REACTIONS (3)
  - CHOLECYSTECTOMY [None]
  - PAIN [None]
  - INJURY [None]
